FAERS Safety Report 12540632 (Version 3)
Quarter: 2016Q3

REPORT INFORMATION
  Report Type: Spontaneous
  Country: US (occurrence: US)
  Receive Date: 20160708
  Receipt Date: 20160906
  Transmission Date: 20161109
  Serious: Yes (Other)
  Sender: FDA-Public Use
  Company Number: US-TEVA-652202USA

PATIENT
  Age: 44 Year
  Sex: Female

DRUGS (2)
  1. ZECUITY [Suspect]
     Active Substance: SUMATRIPTAN SUCCINATE
     Indication: MIGRAINE
     Route: 062
     Dates: start: 20160411
  2. GRALISE [Concomitant]
     Active Substance: GABAPENTIN
     Dosage: 1800

REACTIONS (17)
  - Application site erythema [Recovered/Resolved]
  - Circumstance or information capable of leading to medication error [Unknown]
  - Application site discolouration [Recovered/Resolved]
  - Application site erosion [Recovered/Resolved]
  - Application site exfoliation [Recovered/Resolved]
  - Application site discomfort [Recovered/Resolved]
  - Incorrect drug administration duration [Unknown]
  - Device battery issue [Unknown]
  - Application site pain [Recovered/Resolved]
  - Product leakage [Unknown]
  - Application site paraesthesia [Recovered/Resolved]
  - Application site irritation [Recovered/Resolved]
  - Application site warmth [Recovered/Resolved]
  - Application site burn [Recovered/Resolved]
  - Skin reaction [Recovered/Resolved]
  - Product adhesion issue [Unknown]
  - Drug ineffective [Unknown]

NARRATIVE: CASE EVENT DATE: 20160411
